FAERS Safety Report 9335102 (Version 1)
Quarter: 2013Q2

REPORT INFORMATION
  Report Type: Spontaneous
  Country: CA (occurrence: CA)
  Receive Date: 20130606
  Receipt Date: 20130606
  Transmission Date: 20140414
  Serious: Yes (Death)
  Sender: FDA-Public Use
  Company Number: CA-GLAXOSMITHKLINE-A1024729A

PATIENT
  Age: 70 Year
  Sex: Male

DRUGS (4)
  1. VOTRIENT [Suspect]
     Indication: SARCOMA
     Route: 048
     Dates: start: 20130104
  2. MULTIVITAMINS [Concomitant]
  3. VITAMIN B12 [Concomitant]
  4. IRON [Concomitant]

REACTIONS (1)
  - Death [Fatal]
